FAERS Safety Report 15300053 (Version 1)
Quarter: 2018Q3

REPORT INFORMATION
  Report Type: Spontaneous
  Country: US (occurrence: US)
  Receive Date: 20180821
  Receipt Date: 20180821
  Transmission Date: 20181010
  Serious: No
  Sender: FDA-Public Use
  Company Number: US-PFIZER INC-2018331163

PATIENT
  Age: 4 Week
  Sex: Male

DRUGS (1)
  1. GENOTROPIN MQ [Suspect]
     Active Substance: SOMATROPIN
     Dosage: 0.2 MG, DAILY
     Dates: start: 201710

REACTIONS (2)
  - Thyroxine free increased [Unknown]
  - Blood follicle stimulating hormone decreased [Unknown]

NARRATIVE: CASE EVENT DATE: 20171024
